FAERS Safety Report 23420513 (Version 1)
Quarter: 2024Q1

REPORT INFORMATION
  Report Type: Report from Study
  Country: US (occurrence: US)
  Receive Date: 20240119
  Receipt Date: 20240119
  Transmission Date: 20240410
  Serious: Yes (Death, Other)
  Sender: FDA-Public Use
  Company Number: US-GILEAD-2024-0658840

PATIENT
  Age: 87 Year
  Sex: Female

DRUGS (12)
  1. AZTREONAM LYSINE [Suspect]
     Active Substance: AZTREONAM LYSINE
     Indication: Pseudomonas infection
     Dosage: INHALE 75 MG 3 TIMES A DAY FOR 28 DAYS ON THEN 28 DAYS OFF
     Route: 055
  2. POTASSIUM CHLORIDE [Concomitant]
     Active Substance: POTASSIUM CHLORIDE
  3. MIRTAZAPINE [Concomitant]
     Active Substance: MIRTAZAPINE
  4. PANTOPRAZOLE [Concomitant]
     Active Substance: PANTOPRAZOLE
  5. TOBI [Concomitant]
     Active Substance: TOBRAMYCIN
  6. FAMOTIDINE [Concomitant]
     Active Substance: FAMOTIDINE
  7. ALBUTEROL SULFATE [Concomitant]
     Active Substance: ALBUTEROL SULFATE
  8. ATORVASTATIN [Concomitant]
     Active Substance: ATORVASTATIN
  9. TRIAMTERENE [Concomitant]
     Active Substance: TRIAMTERENE
  10. OXYGEN [Concomitant]
     Active Substance: OXYGEN
  11. KETOCONAZOLE [Concomitant]
     Active Substance: KETOCONAZOLE
  12. EPIPEN [Concomitant]
     Active Substance: EPINEPHRINE

REACTIONS (2)
  - Death [Fatal]
  - Off label use [Not Recovered/Not Resolved]

NARRATIVE: CASE EVENT DATE: 20240109
